FAERS Safety Report 5695951-4 (Version None)
Quarter: 2008Q2

REPORT INFORMATION
  Report Type: 
  Country: None (occurrence: None)
  Receive Date: 20080407
  Receipt Date: 20080402
  Transmission Date: 20081010
  Serious: Yes (Congenital Anomaly)
  Sender: FDA-Public Use
  Company Number: GB-WYE-G01338108

PATIENT

DRUGS (2)
  1. EFFEXOR [Suspect]
     Dosage: UNKNOWN
     Route: 064
  2. OLANZAPINE [Suspect]
     Dosage: UNKNOWN
     Route: 064

REACTIONS (2)
  - CONGENITAL DIAPHRAGMATIC HERNIA [None]
  - DRUG EXPOSURE DURING PREGNANCY [None]
